FAERS Safety Report 7450086-5 (Version None)
Quarter: 2011Q2

REPORT INFORMATION
  Report Type: 
  Country: None (occurrence: None)
  Receive Date: 20110502
  Receipt Date: 20090412
  Transmission Date: 20111010
  Serious: Yes (Death, Other)
  Sender: FDA-Public Use
  Company Number: US-BAYER-200917867NA

PATIENT
  Age: 60 Year
  Sex: Female
  Weight: 61.678 kg

DRUGS (11)
  1. TRASYLOL [Suspect]
     Indication: CORONARY ARTERY BYPASS
     Dosage: UNK
     Route: 042
     Dates: start: 19970410
  2. LANOXIN [Concomitant]
     Dosage: 0.25 MG, QD
     Route: 048
     Dates: start: 19860101
  3. HUMULIN N [INSULIN HUMAN] [Concomitant]
     Dosage: UNK
     Route: 058
     Dates: start: 19890101
  4. TRASYLOL [Suspect]
     Indication: AORTIC VALVE REPAIR
  5. QUINIDINE [Concomitant]
     Dosage: 324 MG, UNK
     Route: 048
     Dates: start: 19890101
  6. LASIX [Concomitant]
     Route: 048
  7. PROTAMINE SULFATE [Concomitant]
     Dosage: UNK
     Route: 042
     Dates: start: 19970410
  8. NITROGLYCERIN [Concomitant]
     Route: 042
  9. HEPARIN [Concomitant]
     Dosage: 900 U, Q1HR
     Route: 042
     Dates: start: 19970407
  10. LOPRESSOR [Concomitant]
     Dosage: UNK
     Route: 048
     Dates: start: 19910101
  11. COUMADIN [Concomitant]
     Dosage: 7.5 MG, QD
     Route: 048
     Dates: start: 19890101

REACTIONS (11)
  - RENAL INJURY [None]
  - UNEVALUABLE EVENT [None]
  - MULTI-ORGAN FAILURE [None]
  - ANXIETY [None]
  - RENAL FAILURE [None]
  - RENAL IMPAIRMENT [None]
  - EMOTIONAL DISTRESS [None]
  - FEAR [None]
  - PAIN [None]
  - DEATH [None]
  - STRESS [None]
